FAERS Safety Report 16970346 (Version 8)
Quarter: 2023Q2

REPORT INFORMATION
  Report Type: Spontaneous
  Country: US (occurrence: US)
  Receive Date: 20191029
  Receipt Date: 20230629
  Transmission Date: 20230722
  Serious: Yes (Other)
  Sender: FDA-Public Use
  Company Number: US-GILEAD-2019-0434731

PATIENT
  Age: 41 Year
  Sex: Female
  Weight: 57.143 kg

DRUGS (39)
  1. VIREAD [Suspect]
     Active Substance: TENOFOVIR DISOPROXIL FUMARATE
     Indication: HIV infection
     Dosage: UNK
     Route: 048
     Dates: start: 2001, end: 2010
  2. VIREAD [Suspect]
     Active Substance: TENOFOVIR DISOPROXIL FUMARATE
     Dosage: UNK
     Route: 048
     Dates: start: 20010516, end: 20100420
  3. VIREAD [Suspect]
     Active Substance: TENOFOVIR DISOPROXIL FUMARATE
     Dosage: UNK
     Route: 048
     Dates: start: 20010518, end: 20020108
  4. VIREAD [Suspect]
     Active Substance: TENOFOVIR DISOPROXIL FUMARATE
     Dosage: UNK
     Route: 048
     Dates: start: 20020109, end: 20100319
  5. ACETAMINOPHEN [Concomitant]
     Active Substance: ACETAMINOPHEN
  6. ACYCLOVIR [Concomitant]
     Active Substance: ACYCLOVIR
  7. ASPIRIN [Concomitant]
     Active Substance: ASPIRIN
  8. GANCICLOVIR [Concomitant]
     Active Substance: GANCICLOVIR
  9. OMEPRAZOLE [Concomitant]
     Active Substance: OMEPRAZOLE
  10. PANTOPRAZOLE [Concomitant]
     Active Substance: PANTOPRAZOLE
  11. ISENTRESS [Concomitant]
     Active Substance: RALTEGRAVIR POTASSIUM
  12. LEXIVA [Concomitant]
     Active Substance: FOSAMPRENAVIR CALCIUM
  13. NORVIR [Concomitant]
     Active Substance: RITONAVIR
  14. PREZISTA [Concomitant]
     Active Substance: DARUNAVIR ETHANOLATE
  15. SELZENTRY [Concomitant]
     Active Substance: MARAVIROC
  16. DOXYCYCLINE [Concomitant]
     Active Substance: DOXYCYCLINE
  17. PREDNISOLONE ACETATE [Concomitant]
     Active Substance: PREDNISOLONE ACETATE
  18. BRIMONIDINE [Concomitant]
     Active Substance: BRIMONIDINE TARTRATE
  19. CICLESONIDE [Concomitant]
     Active Substance: CICLESONIDE
  20. AMOXICILLIN [Concomitant]
     Active Substance: AMOXICILLIN
  21. BACTRIM [Concomitant]
     Active Substance: SULFAMETHOXAZOLE\TRIMETHOPRIM
  22. HEPARIN [Concomitant]
     Active Substance: HEPARIN SODIUM
  23. PENICILLIN [Concomitant]
     Active Substance: PENICILLIN
  24. PREDNISONE [Concomitant]
     Active Substance: PREDNISONE
  25. TETRACYCLINE [Concomitant]
     Active Substance: TETRACYCLINE
  26. CRIXIVAN [Concomitant]
     Active Substance: INDINAVIR SULFATE
  27. EPIVIR [Concomitant]
     Active Substance: LAMIVUDINE
  28. FUZEON [Concomitant]
     Active Substance: ENFUVIRTIDE
  29. INVIRASE [Concomitant]
     Active Substance: SAQUINAVIR MESYLATE
  30. KALETRA [Concomitant]
     Active Substance: LOPINAVIR\RITONAVIR
  31. RETROVIR [Concomitant]
     Active Substance: ZIDOVUDINE
  32. SUSTIVA [Concomitant]
     Active Substance: EFAVIRENZ
  33. TRIZIVIR [Concomitant]
     Active Substance: ABACAVIR SULFATE\LAMIVUDINE\ZIDOVUDINE
  34. VIDEX [Concomitant]
     Active Substance: DIDANOSINE
  35. VIDEX EC [Concomitant]
     Active Substance: DIDANOSINE
  36. VIRAMUNE [Concomitant]
     Active Substance: NEVIRAPINE
  37. ZIAGEN [Concomitant]
     Active Substance: ABACAVIR SULFATE
  38. ZERIT [Concomitant]
     Active Substance: STAVUDINE
  39. LISINOPRIL [Concomitant]
     Active Substance: LISINOPRIL

REACTIONS (18)
  - Pathological fracture [Unknown]
  - Osteoporosis [Not Recovered/Not Resolved]
  - Fanconi syndrome acquired [Recovered/Resolved]
  - Renal failure [Unknown]
  - Osteopenia [Not Recovered/Not Resolved]
  - Back pain [Unknown]
  - Vitamin D decreased [Unknown]
  - Bone density decreased [Not Recovered/Not Resolved]
  - Pain [Recovered/Resolved]
  - Emotional distress [Recovered/Resolved]
  - Anxiety [Recovered/Resolved]
  - Anhedonia [Not Recovered/Not Resolved]
  - Economic problem [Not Recovered/Not Resolved]
  - Glycosuria [Not Recovered/Not Resolved]
  - Depression [Recovered/Resolved]
  - Fatigue [Unknown]
  - Weight decreased [Unknown]
  - Proteinuria [Not Recovered/Not Resolved]

NARRATIVE: CASE EVENT DATE: 20080101
